FAERS Safety Report 21172083 (Version 1)
Quarter: 2022Q3

REPORT INFORMATION
  Report Type: Spontaneous
  Country: US (occurrence: None)
  Receive Date: 20220803
  Receipt Date: 20220803
  Transmission Date: 20221027
  Serious: No
  Sender: FDA-Public Use
  Company Number: None

PATIENT
  Sex: Female

DRUGS (1)
  1. TASIGNA [Suspect]
     Active Substance: NILOTINIB

REACTIONS (6)
  - Electrocardiogram QT prolonged [None]
  - Hepatic enzyme increased [None]
  - Headache [None]
  - Dizziness [None]
  - White blood cell count increased [None]
  - Cardiac flutter [None]
